FAERS Safety Report 20659569 (Version 1)
Quarter: 2022Q1

REPORT INFORMATION
  Report Type: Spontaneous
  Country: US (occurrence: None)
  Receive Date: 20220325
  Receipt Date: 20220325
  Transmission Date: 20220423
  Serious: Yes (Other)
  Sender: FDA-Public Use
  Company Number: None

PATIENT
  Age: 35 Year
  Sex: Male
  Weight: 90 kg

DRUGS (3)
  1. DIETARY SUPPLEMENT\ENOBOSARM [Suspect]
     Active Substance: DIETARY SUPPLEMENT\ENOBOSARM
     Indication: Muscle hypertrophy
     Route: 048
     Dates: start: 20210301, end: 20220306
  2. DIETARY SUPPLEMENT\IBUTAMOREN MESYLATE [Suspect]
     Active Substance: DIETARY SUPPLEMENT\IBUTAMOREN MESYLATE
  3. DIETARY SUPPLEMENT\VOSILASARM [Suspect]
     Active Substance: DIETARY SUPPLEMENT\VOSILASARM

REACTIONS (3)
  - Chest pain [None]
  - Liver injury [None]
  - Jaundice [None]

NARRATIVE: CASE EVENT DATE: 20220322
